FAERS Safety Report 5382909-8 (Version None)
Quarter: 2007Q3

REPORT INFORMATION
  Report Type: 
  Country: None (occurrence: None)
  Receive Date: 20070705
  Receipt Date: 20070628
  Transmission Date: 20080115
  Serious: Yes (Hospitalization)
  Sender: FDA-Public Use
  Company Number: 2007SP002438

PATIENT
  Age: 70 Year
  Sex: Male
  Weight: 80.2867 kg

DRUGS (5)
  1. XOPENEX HFA [Suspect]
     Indication: CHRONIC OBSTRUCTIVE PULMONARY DISEASE
     Dosage: ;PRN;INHALATION
     Route: 055
     Dates: end: 20070627
  2. SIMVASTATIN [Concomitant]
  3. REQUIP [Concomitant]
  4. DOXAZOSIN MESYLATE [Concomitant]
  5. ATROVENT [Concomitant]

REACTIONS (3)
  - CHRONIC OBSTRUCTIVE PULMONARY DISEASE [None]
  - CONDITION AGGRAVATED [None]
  - HEART RATE IRREGULAR [None]
